FAERS Safety Report 12853799 (Version 1)
Quarter: 2016Q4

REPORT INFORMATION
  Report Type: Report from Study
  Country: BR (occurrence: BR)
  Receive Date: 20161017
  Receipt Date: 20161017
  Transmission Date: 20170207
  Serious: Yes (Other)
  Sender: FDA-Public Use
  Company Number: PHHY2016BR142120

PATIENT
  Sex: Female
  Weight: 43 kg

DRUGS (3)
  1. ACLASTA [Suspect]
     Active Substance: ZOLEDRONIC ACID
     Indication: OSTEOPOROSIS
     Dosage: 5 MG, Q12MO (ONCE A YEAR)
     Route: 042
  2. ARTRODAR [Concomitant]
     Active Substance: DIACEREIN
     Indication: PRODUCT USED FOR UNKNOWN INDICATION
     Dosage: UNK
     Route: 065
  3. DEPURA [Concomitant]
     Active Substance: CHOLECALCIFEROL
     Indication: PRODUCT USED FOR UNKNOWN INDICATION
     Dosage: UNK
     Route: 065

REACTIONS (8)
  - Body mass index decreased [Unknown]
  - Feeding disorder [Unknown]
  - Oesophageal disorder [Unknown]
  - Dysphagia [Unknown]
  - Choking [Unknown]
  - Weight decreased [Unknown]
  - Suffocation feeling [Unknown]
  - Body height decreased [Unknown]
